FAERS Safety Report 24133383 (Version 1)
Quarter: 2024Q3

REPORT INFORMATION
  Report Type: Spontaneous
  Country: DE (occurrence: DE)
  Receive Date: 20240724
  Receipt Date: 20240724
  Transmission Date: 20241017
  Serious: No
  Sender: UCB
  Company Number: DE-UCBSA-2024029642

PATIENT
  Sex: Male

DRUGS (1)
  1. NEUPRO [Suspect]
     Active Substance: ROTIGOTINE
     Indication: Restless legs syndrome
     Dosage: 1 MILLIGRAM, ONCE DAILY (QD)
     Route: 062

REACTIONS (4)
  - Discomfort [Unknown]
  - Product adhesion issue [Unknown]
  - Therapy interrupted [Unknown]
  - Drug ineffective [Unknown]
